FAERS Safety Report 11680690 (Version 2)
Quarter: 2015Q4

REPORT INFORMATION
  Report Type: Spontaneous
  Country: US (occurrence: US)
  Receive Date: 20151027
  Receipt Date: 20151104
  Transmission Date: 20160304
  Serious: No
  Sender: FDA-Public Use
  Company Number: US-ELI_LILLY_AND_COMPANY-US201003001500

PATIENT
  Age: 77 Year
  Sex: Female

DRUGS (1)
  1. FORTEO [Suspect]
     Active Substance: TERIPARATIDE
     Dosage: UNK, UNKNOWN

REACTIONS (10)
  - Bowel movement irregularity [Unknown]
  - Injection site pain [Recovered/Resolved]
  - Contusion [Recovered/Resolved]
  - Constipation [Unknown]
  - Musculoskeletal pain [Not Recovered/Not Resolved]
  - Nodule [Unknown]
  - Muscle spasms [Not Recovered/Not Resolved]
  - Arthralgia [Not Recovered/Not Resolved]
  - Viral infection [Unknown]
  - Arthritis [Unknown]
